FAERS Safety Report 7912040-6 (Version None)
Quarter: 2011Q4

REPORT INFORMATION
  Report Type: 
  Country: None (occurrence: None)
  Receive Date: 20111114
  Receipt Date: 20111028
  Transmission Date: 20120403
  Serious: Yes (Death)
  Sender: FDA-Public Use
  Company Number: JP-SANOFI-AVENTIS-2011SA071901

PATIENT
  Age: 77 Year
  Sex: Male

DRUGS (8)
  1. SEROTONE [Concomitant]
     Dates: start: 20110712
  2. BICALUTAMIDE [Concomitant]
  3. ZOMETA [Concomitant]
     Dates: start: 20101228
  4. TAXOTERE [Suspect]
     Indication: PROSTATE CANCER
     Route: 042
     Dates: start: 20110712, end: 20110712
  5. TAXOTERE [Suspect]
     Route: 042
     Dates: start: 20110913, end: 20110913
  6. TAXOTERE [Suspect]
     Route: 042
     Dates: start: 20110802, end: 20110802
  7. TAXOTERE [Suspect]
     Route: 042
     Dates: start: 20110823, end: 20110823
  8. LEUPROLIDE ACETATE [Suspect]
     Route: 065
     Dates: start: 20101228, end: 20110322

REACTIONS (1)
  - INTERSTITIAL LUNG DISEASE [None]
